FAERS Safety Report 11862191 (Version 1)
Quarter: 2015Q4

REPORT INFORMATION
  Report Type: Spontaneous
  Country: DE (occurrence: DE)
  Receive Date: 20151222
  Receipt Date: 20151222
  Transmission Date: 20160305
  Serious: Yes (Other)
  Sender: FDA-Public Use
  Company Number: DE-DEP_13287_2015

PATIENT
  Age: 73 Year
  Sex: Female

DRUGS (6)
  1. AHP [Concomitant]
     Dosage: DF
  2. DIPYRONE [Concomitant]
     Active Substance: DIPYRONE
     Dosage: DF
  3. PALEXIA [Suspect]
     Active Substance: TAPENTADOL HYDROCHLORIDE
     Indication: PAIN
     Route: 048
  4. ALL OTHER THERAPEUTIC PRODUCTS [Concomitant]
     Active Substance: UNSPECIFIED INGREDIENT
     Dosage: DF
  5. THYROID HORMONES [Concomitant]
     Active Substance: UNSPECIFIED INGREDIENT
     Dosage: DF
  6. FLECAINIDE [Concomitant]
     Active Substance: FLECAINIDE
     Dosage: DF

REACTIONS (9)
  - Balance disorder [Unknown]
  - Restlessness [Unknown]
  - Limb discomfort [Unknown]
  - Adverse event [Unknown]
  - Gait disturbance [Unknown]
  - Drug ineffective [Unknown]
  - Poor quality sleep [Unknown]
  - Weight decreased [Unknown]
  - Agitation [Unknown]
